FAERS Safety Report 5999887-0 (Version None)
Quarter: 2008Q4

REPORT INFORMATION
  Report Type: 
  Country: None (occurrence: None)
  Receive Date: 20081215
  Receipt Date: 20081203
  Transmission Date: 20090506
  Serious: Yes (Other)
  Sender: FDA-Public Use
  Company Number: JP-AVENTIS-200813759JP

PATIENT
  Age: 55 Year
  Sex: Female

DRUGS (1)
  1. FUROSEMIDE [Suspect]

REACTIONS (2)
  - DRUG ABUSE [None]
  - PSEUDO-BARTTER SYNDROME [None]
